FAERS Safety Report 17721718 (Version 8)
Quarter: 2020Q4

REPORT INFORMATION
  Report Type: Report from Study
  Country: US (occurrence: US)
  Receive Date: 20200429
  Receipt Date: 20201202
  Transmission Date: 20210113
  Serious: Yes (Other)
  Sender: FDA-Public Use
  Company Number: US-ADVANZ PHARMA-202004004071

PATIENT

DRUGS (8)
  1. DUPIXENT [Suspect]
     Active Substance: DUPILUMAB
     Indication: ASTHMA
     Dosage: 600 MG, QD
     Route: 058
     Dates: start: 20190901, end: 20190901
  2. DUPIXENT [Suspect]
     Active Substance: DUPILUMAB
     Dosage: 300 MG QOW
     Route: 058
     Dates: start: 20200318, end: 2020
  3. DUPILUMAB [Suspect]
     Active Substance: DUPILUMAB
     Indication: ASTHMA
     Dosage: PRE-FILLED SYRINGE
     Route: 065
  4. HYDROXYCHLOROQUINE [Suspect]
     Active Substance: HYDROXYCHLOROQUINE
     Indication: OSTEOARTHRITIS
     Dosage: UNK
     Route: 065
     Dates: start: 202003
  5. HYDROXYCHLOROQUINE [Suspect]
     Active Substance: HYDROXYCHLOROQUINE
     Indication: ARTHRALGIA
  6. DUPIXENT [Suspect]
     Active Substance: DUPILUMAB
     Dosage: 300 MG, MONTHLY
     Route: 058
     Dates: start: 202001, end: 20200709
  7. DUPIXENT [Suspect]
     Active Substance: DUPILUMAB
     Dosage: 300 MG, Q3W
     Route: 058
     Dates: start: 20201119
  8. DUPIXENT [Suspect]
     Active Substance: DUPILUMAB
     Dosage: 300 MG,  QOW
     Route: 058
     Dates: start: 2019

REACTIONS (13)
  - Injection site erythema [Unknown]
  - Diarrhoea [Recovered/Resolved]
  - Arthralgia [Not Recovered/Not Resolved]
  - Product preparation error [Unknown]
  - Injection site pain [Unknown]
  - Product use issue [Unknown]
  - Hypoacusis [Unknown]
  - Product storage error [Unknown]
  - Arthritis [Not Recovered/Not Resolved]
  - Injection site pruritus [Unknown]
  - Off label use [Unknown]
  - Haematochezia [Unknown]
  - Injection site rash [Unknown]

NARRATIVE: CASE EVENT DATE: 20190901
